FAERS Safety Report 14371643 (Version 2)
Quarter: 2018Q1

REPORT INFORMATION
  Report Type: Spontaneous
  Country: US (occurrence: US)
  Receive Date: 20180110
  Receipt Date: 20180209
  Transmission Date: 20180509
  Serious: Yes (Hospitalization)
  Sender: FDA-Public Use
  Company Number: US-GLAXOSMITHKLINE-US2018001117

PATIENT
  Age: 45 Year
  Sex: Female
  Weight: 95.51 kg

DRUGS (1)
  1. NUCALA [Suspect]
     Active Substance: MEPOLIZUMAB
     Indication: ASTHMA
     Dosage: UNK
     Route: 058
     Dates: start: 20171121

REACTIONS (7)
  - Decreased appetite [Unknown]
  - Blood potassium decreased [Unknown]
  - Chest discomfort [Unknown]
  - Drug dose omission [Not Recovered/Not Resolved]
  - Product availability issue [Unknown]
  - Dyspnoea [Not Recovered/Not Resolved]
  - Oxygen saturation decreased [Unknown]

NARRATIVE: CASE EVENT DATE: 20171229
